FAERS Safety Report 9227154 (Version 1)
Quarter: 2013Q1

REPORT INFORMATION
  Report Type: Spontaneous
  Country: US (occurrence: None)
  Receive Date: 20121012
  Receipt Date: 20121012
  Transmission Date: 20140127
  Serious: Yes (Hospitalization)
  Sender: FDA-Public Use
  Company Number: 1000029116

PATIENT
  Age: 21 Year
  Sex: Female

DRUGS (3)
  1. LEXAPRO (ESCITALOPRAM OXALATE) [Suspect]
     Indication: ANXIETY
     Route: 048
     Dates: start: 20120203, end: 20120207
  2. LEXAPRO (ESCITALOPRAM OXALATE) [Suspect]
     Indication: ANXIETY
     Route: 048
     Dates: start: 20120208, end: 20120227
  3. LOESTRIN FE (NORETHINDRONE, ETHINYL ESTRADIOL) (NORETHINDRONE, ETHINYL ESTRADIOL) [Concomitant]

REACTIONS (5)
  - Suicidal ideation [None]
  - Suicidal behaviour [None]
  - Anger [None]
  - Crying [None]
  - Social avoidant behaviour [None]
